FAERS Safety Report 6280459-8 (Version None)
Quarter: 2009Q3

REPORT INFORMATION
  Report Type: 
  Country: None (occurrence: None)
  Receive Date: 20090724
  Receipt Date: 20080618
  Transmission Date: 20100115
  Serious: No
  Sender: FDA-Public Use
  Company Number: A0733927A

PATIENT
  Sex: Female

DRUGS (7)
  1. AVANDIA [Suspect]
     Dosage: 4MG PER DAY
     Route: 048
     Dates: start: 20080101
  2. WELLBUTRIN XL [Suspect]
     Dosage: 150MG TWICE PER DAY
     Route: 048
     Dates: start: 20060101
  3. LEVOTHYROXINE SODIUM [Concomitant]
  4. NEXIUM [Concomitant]
  5. XANAX [Concomitant]
  6. LISINOPRIL [Concomitant]
  7. ZOLOFT [Concomitant]

REACTIONS (1)
  - BLOOD GLUCOSE INCREASED [None]
